FAERS Safety Report 6993122-2 (Version None)
Quarter: 2010Q3

REPORT INFORMATION
  Report Type: 
  Country: None (occurrence: None)
  Receive Date: 20100917
  Receipt Date: 20100226
  Transmission Date: 20110219
  Serious: No
  Sender: FDA-Public Use
  Company Number: US-ASTRAZENECA-2010SE08588

PATIENT
  Sex: Male
  Weight: 70.8 kg

DRUGS (2)
  1. SEROQUEL [Suspect]
     Indication: BIPOLAR DISORDER
     Route: 048
  2. LITHIUM CARBONATE [Concomitant]
     Indication: BIPOLAR DISORDER

REACTIONS (1)
  - VOCAL CORD PARALYSIS [None]
